FAERS Safety Report 6840457-X (Version None)
Quarter: 2010Q3

REPORT INFORMATION
  Report Type: 
  Country: None (occurrence: None)
  Receive Date: 20100714
  Receipt Date: 20100707
  Transmission Date: 20110219
  Serious: Yes (Other)
  Sender: FDA-Public Use
  Company Number: US-JNJFOC-20100503337

PATIENT
  Age: 2 Year
  Weight: 10.43 kg

DRUGS (3)
  1. CHILDREN'S TYLENOL SUSPENSION [Suspect]
  2. CHILDREN'S TYLENOL SUSPENSION [Suspect]
     Indication: PYREXIA
  3. BENADRYL [Suspect]
     Indication: PRODUCT USED FOR UNKNOWN INDICATION

REACTIONS (3)
  - AMBLYOPIA [None]
  - PRODUCT QUALITY ISSUE [None]
  - STRABISMUS [None]
